FAERS Safety Report 5354243-3 (Version None)
Quarter: 2007Q2

REPORT INFORMATION
  Report Type: 
  Country: None (occurrence: None)
  Receive Date: 20070521
  Receipt Date: 20070119
  Transmission Date: 20071010
  Serious: No
  Sender: FDA-Public Use
  Company Number: WAES 0701USA03374

PATIENT
  Age: 80 Year
  Sex: Male

DRUGS (6)
  1. JANUVIA [Suspect]
     Indication: DIABETES MELLITUS NON-INSULIN-DEPENDENT
     Dosage: 100 MG/DAILY/PO
     Route: 048
     Dates: start: 20070118, end: 20070119
  2. GLUCOPHAGE [Concomitant]
  3. GLUCOTROL [Concomitant]
  4. LIPITOR [Concomitant]
  5. LOTENSIN [Concomitant]
  6. ZYLOPRIM [Concomitant]

REACTIONS (1)
  - BLOOD GLUCOSE INCREASED [None]
